FAERS Safety Report 13519943 (Version 5)
Quarter: 2017Q4

REPORT INFORMATION
  Report Type: Spontaneous
  Country: US (occurrence: US)
  Receive Date: 20170506
  Receipt Date: 20171005
  Transmission Date: 20180320
  Serious: Yes (Other)
  Sender: FDA-Public Use
  Company Number: US-TEVA-760447ACC

PATIENT
  Age: 39 Year
  Sex: Female

DRUGS (88)
  1. PREDNISONE. [Concomitant]
     Active Substance: PREDNISONE
     Dates: start: 20161028, end: 20161115
  2. DIVALPROEX DR [Concomitant]
     Active Substance: DIVALPROEX SODIUM
     Dates: start: 20160809, end: 20170805
  3. CLONAZEPAM. [Concomitant]
     Active Substance: CLONAZEPAM
     Dates: start: 20160809
  4. CLONAZEPAM. [Concomitant]
     Active Substance: CLONAZEPAM
     Dates: start: 20161202, end: 20170131
  5. CLONAZEPAM. [Concomitant]
     Active Substance: CLONAZEPAM
     Dates: start: 20170110, end: 20170311
  6. PRAZOSIN HYDROCHLORIDE. [Concomitant]
     Active Substance: PRAZOSIN HYDROCHLORIDE
     Dates: start: 20170227, end: 20170826
  7. CLONIDINE. [Concomitant]
     Active Substance: CLONIDINE
     Dates: start: 20160809
  8. CLONIDINE. [Concomitant]
     Active Substance: CLONIDINE
     Dates: start: 20170803
  9. TYLENOL [Concomitant]
     Active Substance: ACETAMINOPHEN
     Dates: start: 20161206
  10. ZANTAC [Concomitant]
     Active Substance: RANITIDINE HYDROCHLORIDE
     Dates: start: 20161206
  11. OXYCODONE [Concomitant]
     Active Substance: OXYCODONE
     Dates: start: 20170803, end: 20170910
  12. OXYCODONE [Concomitant]
     Active Substance: OXYCODONE
     Dates: start: 20170505, end: 20170617
  13. LATUDA [Concomitant]
     Active Substance: LURASIDONE HYDROCHLORIDE
     Dates: start: 20170316, end: 20170515
  14. DRONABINOL. [Concomitant]
     Active Substance: DRONABINOL
     Dates: start: 20170807
  15. PROMETHAZINE [Concomitant]
     Active Substance: PROMETHAZINE\PROMETHAZINE HYDROCHLORIDE
     Dates: start: 20170104
  16. COPAXONE [Suspect]
     Active Substance: GLATIRAMER ACETATE
     Indication: MULTIPLE SCLEROSIS
     Dosage: 20 MILLIGRAM/MILLILITERS DAILY;
     Route: 058
     Dates: start: 20161207
  17. CLONAZEPAM. [Concomitant]
     Active Substance: CLONAZEPAM
     Dates: start: 20170207, end: 20170403
  18. BENADRYL ALG [Concomitant]
     Dates: start: 20151205, end: 20170605
  19. PRAZOSIN HYDROCHLORIDE. [Concomitant]
     Active Substance: PRAZOSIN HYDROCHLORIDE
     Dates: start: 20170104, end: 20170305
  20. BACLOFEN. [Concomitant]
     Active Substance: BACLOFEN
     Dates: start: 20161018, end: 20161118
  21. BACLOFEN. [Concomitant]
     Active Substance: BACLOFEN
     Dates: start: 20170104, end: 20170205
  22. FLUOXETINE [Concomitant]
     Active Substance: FLUOXETINE HYDROCHLORIDE
     Dates: start: 20170531, end: 20170730
  23. IMODIUM  MS [Concomitant]
  24. OXYCODONE/APAP [Concomitant]
     Active Substance: ACETAMINOPHEN\OXYCODONE HYDROCHLORIDE
     Dates: start: 201702, end: 201702
  25. TRAMADOL HYDROCHLORIDE. [Concomitant]
     Active Substance: TRAMADOL HYDROCHLORIDE
     Dates: start: 20170226, end: 20170409
  26. VITAMIN D3 [Concomitant]
     Active Substance: CHOLECALCIFEROL
     Dates: start: 20170803, end: 20170928
  27. DIVALPROEX DR [Concomitant]
     Active Substance: DIVALPROEX SODIUM
     Dates: start: 20170104, end: 20170305
  28. CLONAZEPAM. [Concomitant]
     Active Substance: CLONAZEPAM
     Dates: start: 20161005, end: 20161204
  29. CLONAZEPAM. [Concomitant]
     Active Substance: CLONAZEPAM
     Dates: start: 20170404, end: 20170603
  30. CLONAZEPAM. [Concomitant]
     Active Substance: CLONAZEPAM
     Dates: start: 20170307, end: 20170505
  31. PRAZOSIN HYDROCHLORIDE. [Concomitant]
     Active Substance: PRAZOSIN HYDROCHLORIDE
     Dates: start: 20161103, end: 20170102
  32. BACLOFEN. [Concomitant]
     Active Substance: BACLOFEN
     Dates: start: 20161103, end: 20161205
  33. CIPROFLOXACIN. [Concomitant]
     Active Substance: CIPROFLOXACIN
     Dates: start: 20170504, end: 20170524
  34. OXYBUTYNIN. [Concomitant]
     Active Substance: OXYBUTYNIN CHLORIDE
     Dates: start: 201612, end: 201701
  35. OXYCODONE/APAP [Concomitant]
     Active Substance: ACETAMINOPHEN\OXYCODONE HYDROCHLORIDE
     Dates: start: 201612, end: 201612
  36. TRAMADOL HYDROCHLORIDE. [Concomitant]
     Active Substance: TRAMADOL HYDROCHLORIDE
     Dates: start: 20161216, end: 20170131
  37. CLONAZEPAM. [Concomitant]
     Active Substance: CLONAZEPAM
     Dates: start: 20170506, end: 20170705
  38. BENADRYL ALG [Concomitant]
     Dates: start: 20161206
  39. PRAZOSIN HYDROCHLORIDE. [Concomitant]
     Active Substance: PRAZOSIN HYDROCHLORIDE
     Dates: start: 201612, end: 201701
  40. PRAZOSIN HYDROCHLORIDE. [Concomitant]
     Active Substance: PRAZOSIN HYDROCHLORIDE
     Dates: start: 20170908
  41. PEPCID [Concomitant]
     Active Substance: FAMOTIDINE
     Dates: start: 20161206, end: 20170605
  42. OXYCODONE [Concomitant]
     Active Substance: OXYCODONE
     Dates: start: 20170602, end: 20170805
  43. OXYCODONE [Concomitant]
     Active Substance: OXYCODONE
     Dates: start: 20170805
  44. CYCLOBENZAPRINE. [Concomitant]
     Active Substance: CYCLOBENZAPRINE
     Dates: start: 20170630, end: 20170829
  45. CYCLOBENZAPRINE. [Concomitant]
     Active Substance: CYCLOBENZAPRINE
     Dates: start: 20170316, end: 20170525
  46. CYCLOBENZAPRINE. [Concomitant]
     Active Substance: CYCLOBENZAPRINE
     Dates: start: 20170803
  47. MELOXICAM. [Concomitant]
     Active Substance: MELOXICAM
  48. OXYCODONE/APAP [Concomitant]
     Active Substance: ACETAMINOPHEN\OXYCODONE HYDROCHLORIDE
     Dates: start: 20161229, end: 20170111
  49. VITAMIN D3 [Concomitant]
     Active Substance: CHOLECALCIFEROL
     Dates: start: 201612, end: 201703
  50. CLONAZEPAM. [Concomitant]
     Active Substance: CLONAZEPAM
     Dates: start: 20160918, end: 20161115
  51. CLONAZEPAM. [Concomitant]
     Active Substance: CLONAZEPAM
     Dates: start: 20160809
  52. PRAZOSIN HYDROCHLORIDE. [Concomitant]
     Active Substance: PRAZOSIN HYDROCHLORIDE
     Dates: start: 20160803, end: 2017
  53. CLONIDINE. [Concomitant]
     Active Substance: CLONIDINE
     Dates: start: 20170505, end: 20170705
  54. IMODIUM MS [Concomitant]
     Dates: start: 20161206
  55. OXYCODONE [Concomitant]
     Active Substance: OXYCODONE
     Dates: start: 20170608, end: 20170723
  56. LATUDA [Concomitant]
     Active Substance: LURASIDONE HYDROCHLORIDE
     Dates: start: 20170807
  57. DRONABINOL. [Concomitant]
     Active Substance: DRONABINOL
     Dates: start: 20170622, end: 20170821
  58. FLUOXETINE [Concomitant]
     Active Substance: FLUOXETINE HYDROCHLORIDE
     Dates: start: 20170104, end: 20170305
  59. MECLIZINE [Concomitant]
     Active Substance: MECLIZINE HYDROCHLORIDE
     Dates: start: 20161111
  60. OXYCODONE/APAP [Concomitant]
     Active Substance: ACETAMINOPHEN\OXYCODONE HYDROCHLORIDE
     Dates: start: 20170307
  61. TRAMADOL HYDROCHLORIDE. [Concomitant]
     Active Substance: TRAMADOL HYDROCHLORIDE
     Dates: start: 20161021, end: 201612
  62. PRAZOSIN HYDROCHLORIDE. [Concomitant]
     Active Substance: PRAZOSIN HYDROCHLORIDE
     Dates: start: 20170531
  63. OXYCODONE [Concomitant]
     Active Substance: OXYCODONE
     Dates: start: 20170630, end: 20170813
  64. FLUOXETINE [Concomitant]
     Active Substance: FLUOXETINE HYDROCHLORIDE
     Dates: start: 20170803
  65. TIZANIDINE. [Concomitant]
     Active Substance: TIZANIDINE
     Dates: start: 20160905, end: 201611
  66. VITAMIN D3 [Concomitant]
     Active Substance: CHOLECALCIFEROL
     Dates: start: 20170307, end: 201706
  67. PREDNISONE. [Concomitant]
     Active Substance: PREDNISONE
     Dates: start: 20170722, end: 20170803
  68. CLONAZEPAM. [Concomitant]
     Active Substance: CLONAZEPAM
     Dates: start: 20170705, end: 20170903
  69. PRAZOSIN HYDROCHLORIDE. [Concomitant]
     Active Substance: PRAZOSIN HYDROCHLORIDE
     Dates: start: 20160809
  70. PRAZOSIN HYDROCHLORIDE. [Concomitant]
     Active Substance: PRAZOSIN HYDROCHLORIDE
     Dates: start: 20170604, end: 20170803
  71. PROZAC [Concomitant]
     Active Substance: FLUOXETINE HYDROCHLORIDE
     Dates: start: 20170605
  72. PERCOCET [Concomitant]
     Active Substance: ACETAMINOPHEN\OXYCODONE HYDROCHLORIDE
     Dates: start: 20170605
  73. BACLOFEN. [Concomitant]
     Active Substance: BACLOFEN
     Dates: start: 20161201, end: 20170102
  74. LATUDA [Concomitant]
     Active Substance: LURASIDONE HYDROCHLORIDE
     Dates: start: 20170531, end: 20170730
  75. LATUDA [Concomitant]
     Active Substance: LURASIDONE HYDROCHLORIDE
     Dates: start: 20170405, end: 20170525
  76. CIPROFLOXACIN. [Concomitant]
     Active Substance: CIPROFLOXACIN
     Dates: start: 20170314, end: 20170324
  77. HALOPERIDOL. [Concomitant]
     Active Substance: HALOPERIDOL
     Dates: start: 20170307, end: 20170506
  78. IBUPROFEN. [Concomitant]
     Active Substance: IBUPROFEN
     Dates: start: 20161202, end: 20161214
  79. OXYBUTYNIN. [Concomitant]
     Active Substance: OXYBUTYNIN CHLORIDE
     Dates: start: 201610, end: 201612
  80. TRAMADOL HYDROCHLORIDE. [Concomitant]
     Active Substance: TRAMADOL HYDROCHLORIDE
     Dates: start: 20161112, end: 201612
  81. CLONAZEPAM. [Concomitant]
     Active Substance: CLONAZEPAM
     Dates: start: 20161104, end: 20170103
  82. OXYCODONE [Concomitant]
     Active Substance: OXYCODONE
     Dates: start: 20170406, end: 20170520
  83. OXYCODONE [Concomitant]
     Active Substance: OXYCODONE
     Dates: start: 20170316, end: 20170423
  84. BACLOFEN. [Concomitant]
     Active Substance: BACLOFEN
     Dates: start: 20170224, end: 20170627
  85. DIAZEPAM. [Concomitant]
     Active Substance: DIAZEPAM
     Dates: start: 20161224, end: 20161226
  86. DRONABINOL. [Concomitant]
     Active Substance: DRONABINOL
     Dates: start: 20170708, end: 20170904
  87. HALOPERIDOL. [Concomitant]
     Active Substance: HALOPERIDOL
     Dates: start: 20170214, end: 20170415
  88. TRAMADOL HYDROCHLORIDE. [Concomitant]
     Active Substance: TRAMADOL HYDROCHLORIDE
     Dates: start: 201701, end: 20170218

REACTIONS (5)
  - Multiple sclerosis relapse [Not Recovered/Not Resolved]
  - Drug dose omission [Unknown]
  - Tremor [Not Recovered/Not Resolved]
  - Urinary tract disorder [Not Recovered/Not Resolved]
  - Fall [Not Recovered/Not Resolved]

NARRATIVE: CASE EVENT DATE: 201705
